FAERS Safety Report 17792038 (Version 2)
Quarter: 2020Q2

REPORT INFORMATION
  Report Type: Spontaneous
  Country: US (occurrence: US)
  Receive Date: 20200515
  Receipt Date: 20200520
  Transmission Date: 20200714
  Serious: Yes (Hospitalization)
  Sender: FDA-Public Use
  Company Number: US-STRIDES ARCOLAB LIMITED-2020SP005709

PATIENT
  Age: 71 Year
  Sex: Male

DRUGS (15)
  1. MYCOPHENOLATE MOFETIL. [Suspect]
     Active Substance: MYCOPHENOLATE MOFETIL
     Dosage: 500 MILLIGRAM, BID
     Route: 065
     Dates: start: 201705
  2. TACROLIMUS. [Suspect]
     Active Substance: TACROLIMUS
     Dosage: 2 MILLIGRAM IN THE EVENING
     Route: 065
     Dates: start: 201409, end: 201705
  3. TACROLIMUS. [Suspect]
     Active Substance: TACROLIMUS
     Dosage: 1 MILLIGRAM, EVERY MORNING
     Route: 065
     Dates: start: 201709
  4. MYCOPHENOLATE MOFETIL. [Suspect]
     Active Substance: MYCOPHENOLATE MOFETIL
     Dosage: 500 MILLIGRAM, BID
     Route: 065
     Dates: start: 201709
  5. PREDNISOLONE. [Suspect]
     Active Substance: PREDNISOLONE
     Dosage: 5 MILLIGRAM PER DAY
     Route: 065
     Dates: start: 201705
  6. PREDNISOLONE. [Suspect]
     Active Substance: PREDNISOLONE
     Dosage: 5 MILLIGRAM PER DAY
     Route: 065
     Dates: start: 201709
  7. MYCOPHENOLATE MOFETIL. [Suspect]
     Active Substance: MYCOPHENOLATE MOFETIL
     Indication: LUNG TRANSPLANT
     Dosage: 500 MILLIGRAM, BID
     Route: 065
     Dates: start: 201409, end: 201705
  8. TACROLIMUS. [Suspect]
     Active Substance: TACROLIMUS
     Dosage: 0.5 MILLIGRAM, BID
     Route: 065
     Dates: start: 201705
  9. TACROLIMUS. [Suspect]
     Active Substance: TACROLIMUS
     Dosage: 0.5 MILLIGRAM IN THE EVENING
     Route: 065
     Dates: start: 201709
  10. TACROLIMUS. [Suspect]
     Active Substance: TACROLIMUS
     Dosage: 1 MILLIGRAM, BID
     Route: 065
     Dates: start: 201711
  11. MYCOPHENOLATE MOFETIL. [Suspect]
     Active Substance: MYCOPHENOLATE MOFETIL
     Dosage: 500 MILLIGRAM, BID
     Route: 065
     Dates: start: 201711
  12. BASILIXIMAB [Suspect]
     Active Substance: BASILIXIMAB
     Indication: LUNG TRANSPLANT
     Dosage: 20 MILLIGRAM ON THE DAY OF TRANSPLANT AND ON THE POSTOPERATIVE DAY 4 AS AN INDUCTION THERAPY
     Route: 042
     Dates: start: 201409
  13. TACROLIMUS. [Suspect]
     Active Substance: TACROLIMUS
     Indication: LUNG TRANSPLANT
     Dosage: 1 MILLIGRAM, EVERY MORNING
     Route: 065
     Dates: start: 201409, end: 201705
  14. PREDNISOLONE. [Suspect]
     Active Substance: PREDNISOLONE
     Indication: LUNG TRANSPLANT
     Dosage: 5 MILLIGRAM PER DAY
     Route: 065
     Dates: start: 201409, end: 201705
  15. PREDNISOLONE. [Suspect]
     Active Substance: PREDNISOLONE
     Dosage: 5 MILLIGRAM PER DAY
     Route: 065
     Dates: start: 201711

REACTIONS (6)
  - Rhodococcus infection [Recovered/Resolved]
  - Pneumonia [Recovered/Resolved]
  - Histoplasmosis [Recovered/Resolved]
  - Off label use [Unknown]
  - Pulmonary mass [Recovered/Resolved]
  - Malacoplakia [Recovered/Resolved]

NARRATIVE: CASE EVENT DATE: 201409
